FAERS Safety Report 8612687-8 (Version None)
Quarter: 2012Q3

REPORT INFORMATION
  Report Type: 
  Country: None (occurrence: None)
  Receive Date: 20120822
  Receipt Date: 20110928
  Transmission Date: 20120928
  Serious: No
  Sender: FDA-Public Use
  Company Number: US-ASTRAZENECA-2011SE58594

PATIENT
  Age: 46 Year
  Sex: Female

DRUGS (20)
  1. PRISTIQ [Concomitant]
     Dosage: 100 MG, 24 HR
  2. HYDRODIURIL [Concomitant]
  3. NEXIUM [Suspect]
     Route: 048
  4. NEURONTIN [Concomitant]
  5. ACCURETIC [Concomitant]
     Dosage: 20-25 MG
  6. LASIX [Concomitant]
  7. ULTRAM [Concomitant]
  8. DESYREL [Concomitant]
  9. VASOTEC [Concomitant]
  10. SYMBICORT [Suspect]
     Dosage: 160-4.5 MCG
     Route: 055
  11. ALDACTONE [Concomitant]
  12. SPIRIVA [Concomitant]
     Route: 055
  13. FLEXERIL [Concomitant]
  14. ADVIL/MOTRIN [Concomitant]
  15. PROVENTIL-HFA [Concomitant]
     Route: 055
  16. TOVIAZ [Concomitant]
     Dosage: 8 MG TB24
  17. LIPITOR [Concomitant]
  18. CELEXA [Concomitant]
  19. KLONOPIN [Concomitant]
  20. POTASSIUM CHLORIDE [Concomitant]

REACTIONS (14)
  - ASTHMA [None]
  - DEPRESSION [None]
  - PNEUMONIA [None]
  - CHRONIC OBSTRUCTIVE PULMONARY DISEASE [None]
  - MUSCULOSKELETAL PAIN [None]
  - CHRONIC HEPATITIS [None]
  - DYSPNOEA [None]
  - ANXIETY [None]
  - ESSENTIAL HYPERTENSION [None]
  - ARTHRALGIA [None]
  - BIPOLAR DISORDER [None]
  - OBESITY [None]
  - SLEEP APNOEA SYNDROME [None]
  - BACK PAIN [None]
